FAERS Safety Report 6803876-3 (Version None)
Quarter: 2010Q2

REPORT INFORMATION
  Report Type: 
  Country: None (occurrence: None)
  Receive Date: 20100628
  Receipt Date: 20100615
  Transmission Date: 20101027
  Serious: Yes (Other)
  Sender: FDA-Public Use
  Company Number: ES-GENENTECH-303280

PATIENT
  Age: 42 Year
  Sex: Female

DRUGS (1)
  1. XOLAIR [Suspect]
     Indication: ASTHMA
     Dosage: UNK
     Route: 058
     Dates: start: 20100315, end: 20100421

REACTIONS (7)
  - ARTHRALGIA [None]
  - ASTHENIA [None]
  - ASTHMA [None]
  - CHEST PAIN [None]
  - DIZZINESS [None]
  - MYALGIA [None]
  - VOMITING [None]
